FAERS Safety Report 9824337 (Version 3)
Quarter: 2015Q3

REPORT INFORMATION
  Report Type: Spontaneous
  Country: US (occurrence: US)
  Receive Date: 20140116
  Receipt Date: 20150807
  Transmission Date: 20151125
  Serious: No
  Sender: FDA-Public Use
  Company Number: US-GILEAD-2011-0037290

PATIENT
  Age: 67 Year
  Sex: Female

DRUGS (7)
  1. LETAIRIS [Suspect]
     Active Substance: AMBRISENTAN
     Indication: PULMONARY HYPERTENSION
     Route: 048
     Dates: start: 20110302, end: 20110304
  2. LETAIRIS [Suspect]
     Active Substance: AMBRISENTAN
     Indication: FLUID OVERLOAD
  3. LETAIRIS [Suspect]
     Active Substance: AMBRISENTAN
     Indication: OBESITY
  4. LETAIRIS [Suspect]
     Active Substance: AMBRISENTAN
     Indication: SLEEP APNOEA SYNDROME
  5. LETAIRIS [Suspect]
     Active Substance: AMBRISENTAN
     Indication: ANTINUCLEAR ANTIBODY POSITIVE
  6. LETAIRIS [Suspect]
     Active Substance: AMBRISENTAN
     Indication: HYPOVENTILATION
  7. REVATIO [Concomitant]
     Active Substance: SILDENAFIL CITRATE

REACTIONS (1)
  - Dyspnoea [Unknown]

NARRATIVE: CASE EVENT DATE: 20110304
